FAERS Safety Report 11651630 (Version 1)
Quarter: 2015Q4

REPORT INFORMATION
  Report Type: Spontaneous
  Country: IR (occurrence: IR)
  Receive Date: 20151022
  Receipt Date: 20151022
  Transmission Date: 20160304
  Serious: Yes (Death)
  Sender: FDA-Public Use
  Company Number: IR-BEH-2015054903

PATIENT
  Age: 27 Year
  Sex: Female

DRUGS (1)
  1. FIBRINOGEN CONCENTRATE (HUMAN) [Suspect]
     Active Substance: FIBRINOGEN HUMAN
     Indication: HYPOFIBRINOGENAEMIA

REACTIONS (10)
  - Mesenteric vein thrombosis [Fatal]
  - White blood cell count increased [None]
  - Incorrect dose administered [Unknown]
  - Platelet count increased [None]
  - Intestinal ischaemia [None]
  - Self-medication [None]
  - Heart rate increased [None]
  - Haemorrhagic ascites [None]
  - Small intestinal haemorrhage [None]
  - Portal vein thrombosis [Unknown]
